FAERS Safety Report 23341120 (Version 1)
Quarter: 2023Q4

REPORT INFORMATION
  Report Type: Report from Study
  Country: US (occurrence: US)
  Receive Date: 20231227
  Receipt Date: 20231227
  Transmission Date: 20240109
  Serious: Yes (Hospitalization)
  Sender: FDA-Public Use
  Company Number: US-GILEAD-2023-0656235

PATIENT
  Age: 10 Year
  Sex: Male

DRUGS (2)
  1. AMBRISENTAN [Suspect]
     Active Substance: AMBRISENTAN
     Indication: Pulmonary arterial hypertension
     Dosage: 5 MG, QD
     Route: 065
  2. TADLIQ [Concomitant]
     Active Substance: TADALAFIL
     Indication: Pulmonary arterial hypertension
     Dosage: 30 MG, QD
     Route: 065

REACTIONS (2)
  - Rhinovirus infection [Unknown]
  - Off label use [Not Recovered/Not Resolved]
